FAERS Safety Report 12478984 (Version 1)
Quarter: 2016Q2

REPORT INFORMATION
  Report Type: Spontaneous
  Country: ES (occurrence: ES)
  Receive Date: 20160620
  Receipt Date: 20160620
  Transmission Date: 20160815
  Serious: Yes (Other)
  Sender: FDA-Public Use
  Company Number: ES-CIPLA LTD.-2016ES07158

PATIENT

DRUGS (7)
  1. PACLITAXEL. [Suspect]
     Active Substance: PACLITAXEL
     Indication: OVARIAN CANCER
     Dosage: 80 MG/M2, ON DAYS 1, 8, AND 15
     Route: 042
  2. BEVACIZUMAB [Suspect]
     Active Substance: BEVACIZUMAB
     Indication: CHEMOTHERAPY
     Dosage: UNK
     Route: 065
  3. PERTUZUMAB [Suspect]
     Active Substance: PERTUZUMAB
     Indication: MALIGNANT PERITONEAL NEOPLASM
  4. TOPOTECAN [Suspect]
     Active Substance: TOPOTECAN\TOPOTECAN HYDROCHLORIDE
     Indication: MALIGNANT PERITONEAL NEOPLASM
  5. TOPOTECAN [Suspect]
     Active Substance: TOPOTECAN\TOPOTECAN HYDROCHLORIDE
     Indication: OVARIAN CANCER RECURRENT
     Dosage: 1.25 MG/M2, ON DAYS 1 TO 5
     Route: 042
  6. PACLITAXEL. [Suspect]
     Active Substance: PACLITAXEL
     Indication: MALIGNANT PERITONEAL NEOPLASM
  7. PERTUZUMAB [Suspect]
     Active Substance: PERTUZUMAB
     Indication: OVARIAN CANCER RECURRENT
     Dosage: LOADING DOSE OF 840 MG FOR CYCLE 1 AND THEN AT 420 MG
     Route: 042

REACTIONS (1)
  - Disease progression [Unknown]
